FAERS Safety Report 21921922 (Version 7)
Quarter: 2023Q2

REPORT INFORMATION
  Report Type: Report from Study
  Country: US (occurrence: US)
  Receive Date: 20230127
  Receipt Date: 20230410
  Transmission Date: 20230721
  Serious: No
  Sender: FDA-Public Use
  Company Number: US-002147023-NVSC2023US013544

PATIENT
  Sex: Female

DRUGS (1)
  1. COSENTYX [Suspect]
     Active Substance: SECUKINUMAB
     Indication: Product used for unknown indication
     Dosage: 300 MG, QMO
     Route: 058

REACTIONS (8)
  - Weight decreased [Unknown]
  - Palpitations [Unknown]
  - Nasopharyngitis [Unknown]
  - Secretion discharge [Unknown]
  - Fatigue [Unknown]
  - Anxiety [Unknown]
  - Psoriasis [Unknown]
  - Drug ineffective [Unknown]
